FAERS Safety Report 8805426 (Version 2)
Quarter: 2015Q1

REPORT INFORMATION
  Report Type: Report from Study
  Country: US (occurrence: US)
  Receive Date: 20120924
  Receipt Date: 20150323
  Transmission Date: 20150721
  Serious: Yes (Death, Other)
  Sender: FDA-Public Use
  Company Number: US-ROCHE-1123749

PATIENT
  Age: 38 Year
  Sex: Male

DRUGS (22)
  1. TEMOZOLOMIDE. [Concomitant]
     Active Substance: TEMOZOLOMIDE
  2. PALONOSETRON [Concomitant]
     Active Substance: PALONOSETRON
     Route: 042
  3. KEPPRA [Concomitant]
     Active Substance: LEVETIRACETAM
     Route: 042
  4. DECADRON [Concomitant]
     Active Substance: DEXAMETHASONE
  5. LORAZEPAM. [Concomitant]
     Active Substance: LORAZEPAM
     Route: 048
  6. ZOFRAN [Concomitant]
     Active Substance: ONDANSETRON HYDROCHLORIDE
     Route: 065
  7. PROMETHAZINE HCL [Concomitant]
     Active Substance: PROMETHAZINE HYDROCHLORIDE
     Route: 065
  8. PROCHLORPERAZINE. [Concomitant]
     Active Substance: PROCHLORPERAZINE
     Route: 042
  9. OXALIPLATIN. [Concomitant]
     Active Substance: OXALIPLATIN
  10. DARBEPOETIN ALFA [Concomitant]
     Active Substance: DARBEPOETIN ALFA
     Route: 065
  11. TYLENOL [Concomitant]
     Active Substance: ACETAMINOPHEN
     Route: 042
  12. GEMCITABINE [Concomitant]
     Active Substance: GEMCITABINE\GEMCITABINE HYDROCHLORIDE
  13. KYTRIL [Concomitant]
     Active Substance: GRANISETRON HYDROCHLORIDE
     Route: 048
  14. IRINOTECAN [Concomitant]
     Active Substance: IRINOTECAN
  15. IBUPROFEN. [Concomitant]
     Active Substance: IBUPROFEN
     Route: 042
  16. DEXAMETHASONE. [Concomitant]
     Active Substance: DEXAMETHASONE
     Route: 065
  17. ATROPINE [Concomitant]
     Active Substance: ATROPINE
  18. AVASTIN [Suspect]
     Active Substance: BEVACIZUMAB
     Indication: BRAIN NEOPLASM MALIGNANT
     Route: 042
  19. TARCEVA [Suspect]
     Active Substance: ERLOTINIB HYDROCHLORIDE
     Indication: BRAIN NEOPLASM MALIGNANT
     Route: 065
  20. OXYCODONE [Concomitant]
     Active Substance: OXYCODONE
     Route: 042
  21. COMPAZINE [Concomitant]
     Active Substance: PROCHLORPERAZINE MALEATE
  22. IBUPROFEN. [Concomitant]
     Active Substance: IBUPROFEN
     Route: 042

REACTIONS (22)
  - Headache [Recovering/Resolving]
  - Gait disturbance [Unknown]
  - Vision blurred [Unknown]
  - Death [Fatal]
  - Discomfort [Unknown]
  - Disease progression [Unknown]
  - Diarrhoea [Recovered/Resolved]
  - Oropharyngeal pain [Unknown]
  - Arthralgia [Unknown]
  - Thrombocytopenia [Unknown]
  - Diplopia [Unknown]
  - Haemorrhage [Unknown]
  - Cellulitis [Unknown]
  - Dyspepsia [Recovering/Resolving]
  - Pain in extremity [Unknown]
  - Somnolence [Unknown]
  - Anxiety [Unknown]
  - Bladder dysfunction [Unknown]
  - Peripheral swelling [Unknown]
  - Furuncle [Unknown]
  - Fatigue [Unknown]
  - Dysphonia [Unknown]

NARRATIVE: CASE EVENT DATE: 20070615
